FAERS Safety Report 6124045-9 (Version None)
Quarter: 2009Q1

REPORT INFORMATION
  Report Type: 
  Country: None (occurrence: None)
  Receive Date: 20090319
  Receipt Date: 20090310
  Transmission Date: 20090719
  Serious: Yes (Other)
  Sender: FDA-Public Use
  Company Number: PHHY2009KR08615

PATIENT
  Age: 83 Year
  Sex: Male

DRUGS (4)
  1. BROMOCRIPTINE MESYLATE [Suspect]
     Dosage: 2.5 MG, TID
  2. MADOPAR [Suspect]
     Dosage: 100/25/62.5 MG, TID
  3. MADOPAR [Suspect]
     Dosage: 125 MG, TID
  4. PRAMIPEXOLE DIHYDROCHLORIDE [Suspect]
     Dosage: 0.125 MG, BID

REACTIONS (5)
  - ABNORMAL BEHAVIOUR [None]
  - ERECTION INCREASED [None]
  - EXCESSIVE MASTURBATION [None]
  - FLUSHING [None]
  - HYPERSEXUALITY [None]
